FAERS Safety Report 7626624-6 (Version None)
Quarter: 2011Q3

REPORT INFORMATION
  Report Type: 
  Country: None (occurrence: None)
  Receive Date: 20110713
  Receipt Date: 20110630
  Transmission Date: 20111222
  Serious: Yes (Life-Threatening, Other)
  Sender: FDA-Public Use
  Company Number: MC201100103

PATIENT
  Age: 61 Year
  Sex: Male
  Weight: 115 kg

DRUGS (18)
  1. SAW PALMETTO (SERENOA REPENS) [Concomitant]
  2. HEPARIN [Concomitant]
  3. FISH OIL (FISH OIL) [Concomitant]
  4. PRAVASTATIN [Concomitant]
  5. FOLIC ACID [Concomitant]
  6. NITROLYCERIN (GLYCERYL TRINITRATE) [Concomitant]
  7. RANITIDINE HCL [Concomitant]
  8. LISINOPRIL (LISINOPRIL DIHYDRATE) [Concomitant]
  9. FLUOXETINE HCL [Concomitant]
  10. ISOVUE-370 [Suspect]
     Indication: ANGIOGRAM
     Dosage: 386 ML, PRN, INTRACORONARY
     Route: 022
     Dates: start: 20110309, end: 20110309
  11. NEBIVOLOL HCL [Concomitant]
  12. VITAMIN E (TOCOPHERYL ACETATE) [Concomitant]
  13. BLINDED STUDY MEDICATION () [Suspect]
     Indication: ANTICOAGULANT THERAPY
     Dosage: 4 CAPSULES; LOADING DOSE, ORAL
     Route: 048
     Dates: start: 20110309, end: 20110309
  14. NITROGLYCERIN [Concomitant]
  15. ASPIRIN [Concomitant]
  16. HYDROCHLOROTHIAZIDE [Concomitant]
  17. HEPARIN [Concomitant]
  18. ANGIOMAX [Suspect]
     Indication: ANTICOAGULANT THERAPY
     Dosage: 186.88 MG, PRN, PRE/DURING PROCEDURE, FEM ACCESS PCI
     Dates: start: 20110309, end: 20110309

REACTIONS (6)
  - HYPOTENSION [None]
  - DYSPNOEA [None]
  - ANAPHYLACTIC REACTION [None]
  - GENERALISED ERYTHEMA [None]
  - PRURITUS [None]
  - CARDIAC PROCEDURE COMPLICATION [None]
